FAERS Safety Report 12964444 (Version 1)
Quarter: 2016Q4

REPORT INFORMATION
  Report Type: Spontaneous
  Country: US (occurrence: US)
  Receive Date: 20161122
  Receipt Date: 20161122
  Transmission Date: 20170207
  Serious: No
  Sender: FDA-Public Use
  Company Number: US-PFIZER INC-2016531009

PATIENT
  Age: 43 Year
  Sex: Female

DRUGS (2)
  1. PRISTIQ EXTENDED-RELEASE [Suspect]
     Active Substance: DESVENLAFAXINE SUCCINATE
     Dosage: UNK
  2. REXULTI [Suspect]
     Active Substance: BREXPIPRAZOLE
     Indication: BIPOLAR DISORDER
     Dosage: 0.5 MG, DAILY

REACTIONS (6)
  - Off label use [Unknown]
  - Rash generalised [Recovering/Resolving]
  - Skin tightness [Recovering/Resolving]
  - Oral herpes [Recovering/Resolving]
  - Tongue haemorrhage [Recovering/Resolving]
  - Dystonia [Recovering/Resolving]
